FAERS Safety Report 7158988-4 (Version None)
Quarter: 2010Q4

REPORT INFORMATION
  Report Type: 
  Country: None (occurrence: None)
  Receive Date: 20101130
  Receipt Date: 20101115
  Transmission Date: 20110411
  Serious: Yes (Other)
  Sender: FDA-Public Use
  Company Number: AUR-APL-2010-02862

PATIENT
  Age: 69 Year
  Sex: Male
  Weight: 87.98 kg

DRUGS (2)
  1. METFORMIN HCL [Suspect]
     Indication: TYPE 2 DIABETES MELLITUS
     Dosage: 500MG - QID
     Dates: start: 20080225, end: 20100728
  2. VICTOZA [Suspect]
     Indication: TYPE 2 DIABETES MELLITUS
     Dosage: 1.2MG - DAILY - SUBQ
     Dates: start: 20100519

REACTIONS (4)
  - DRUG INTERACTION [None]
  - DYSPNOEA [None]
  - MENTAL IMPAIRMENT [None]
  - TENSION HEADACHE [None]
